FAERS Safety Report 13721548 (Version 1)
Quarter: 2017Q3

REPORT INFORMATION
  Report Type: Spontaneous
  Country: US (occurrence: US)
  Receive Date: 20170706
  Receipt Date: 20170706
  Transmission Date: 20171127
  Serious: Yes (Hospitalization)
  Sender: FDA-Public Use
  Company Number: None

PATIENT
  Age: 31 Year
  Sex: Male
  Weight: 74.48 kg

DRUGS (1)
  1. PIPERACILLIN AND TAZOBACTAM [Suspect]
     Active Substance: PIPERACILLIN SODIUM\TAZOBACTAM SODIUM
     Indication: INFECTION
     Route: 042
     Dates: start: 20170626, end: 20170630

REACTIONS (7)
  - Pyrexia [None]
  - Rash morbilliform [None]
  - Leukopenia [None]
  - Nausea [None]
  - Thrombocytopenia [None]
  - Vomiting [None]
  - Hepatic enzyme increased [None]

NARRATIVE: CASE EVENT DATE: 20170630
